FAERS Safety Report 14757564 (Version 9)
Quarter: 2020Q1

REPORT INFORMATION
  Report Type: Report from Study
  Country: None (occurrence: US)
  Receive Date: 20180413
  Receipt Date: 20200119
  Transmission Date: 20200409
  Serious: Yes (Other)
  Sender: FDA-Public Use
  Company Number: US-ABBVIE-18K-163-2275918-00

PATIENT
  Sex: Female
  Weight: 65.83 kg

DRUGS (2)
  1. BENEFIBER [Suspect]
     Active Substance: STARCH, WHEAT
     Indication: PRODUCT USED FOR UNKNOWN INDICATION
     Route: 065
  2. HUMIRA [Suspect]
     Active Substance: ADALIMUMAB
     Indication: COLITIS ULCERATIVE
     Route: 058
     Dates: start: 201802

REACTIONS (24)
  - Nasal congestion [Not Recovered/Not Resolved]
  - Sinusitis [Unknown]
  - Influenza like illness [Recovered/Resolved]
  - Injection site pain [Not Recovered/Not Resolved]
  - Fatigue [Not Recovered/Not Resolved]
  - Alopecia [Not Recovered/Not Resolved]
  - Iron deficiency anaemia [Not Recovered/Not Resolved]
  - Decreased appetite [Recovering/Resolving]
  - Nausea [Recovering/Resolving]
  - Vomiting [Recovering/Resolving]
  - Frequent bowel movements [Not Recovered/Not Resolved]
  - Dysmenorrhoea [Unknown]
  - Swelling face [Recovered/Resolved]
  - Abdominal distension [Unknown]
  - Periorbital oedema [Recovered/Resolved]
  - Therapeutic response shortened [Unknown]
  - Defaecation urgency [Not Recovered/Not Resolved]
  - Malaise [Not Recovered/Not Resolved]
  - Palpitations [Not Recovered/Not Resolved]
  - Abdominal pain [Recovering/Resolving]
  - Peripheral swelling [Recovered/Resolved]
  - Diarrhoea [Recovering/Resolving]
  - Influenza like illness [Not Recovered/Not Resolved]
  - Headache [Unknown]

NARRATIVE: CASE EVENT DATE: 2018
